FAERS Safety Report 5742719-6 (Version None)
Quarter: 2008Q2

REPORT INFORMATION
  Report Type: 
  Country: None (occurrence: None)
  Receive Date: 20080519
  Receipt Date: 20080509
  Transmission Date: 20081010
  Serious: Yes (Hospitalization)
  Sender: FDA-Public Use
  Company Number: B0519823A

PATIENT
  Age: 58 Year
  Sex: Female
  Weight: 98 kg

DRUGS (2)
  1. LAPATINIB [Suspect]
     Indication: BREAST CANCER METASTATIC
     Dosage: 1250MG PER DAY
     Route: 048
     Dates: start: 20080422
  2. XELODA [Suspect]
     Indication: BREAST CANCER METASTATIC
     Dosage: 2000MG TWICE PER DAY
     Route: 048
     Dates: start: 20080411, end: 20080502

REACTIONS (1)
  - RESPIRATORY TRACT INFECTION [None]
